FAERS Safety Report 24976375 (Version 1)
Quarter: 2025Q1

REPORT INFORMATION
  Report Type: Spontaneous
  Country: GB (occurrence: GB)
  Receive Date: 20250217
  Receipt Date: 20250217
  Transmission Date: 20250409
  Serious: Yes (Other)
  Sender: ACCORD
  Company Number: None

PATIENT
  Age: 76 Year
  Sex: Male

DRUGS (8)
  1. LEVETIRACETAM [Suspect]
     Active Substance: LEVETIRACETAM
     Indication: Seizure
  2. AMITRIPTYLINE [Concomitant]
     Active Substance: AMITRIPTYLINE
  3. PREGABALIN [Concomitant]
     Active Substance: PREGABALIN
  4. CARBOCYSTEINE [Concomitant]
     Active Substance: CARBOCYSTEINE
  5. BACLOFEN [Concomitant]
     Active Substance: BACLOFEN
  6. TRAMADOL [Concomitant]
     Active Substance: TRAMADOL
  7. ACETAMINOPHEN [Concomitant]
     Active Substance: ACETAMINOPHEN
  8. DORZOLAMIDE [Concomitant]
     Active Substance: DORZOLAMIDE

REACTIONS (2)
  - Mood altered [Recovered/Resolved]
  - Suicide attempt [Recovered/Resolved]
